FAERS Safety Report 13017497 (Version 1)
Quarter: 2016Q4

REPORT INFORMATION
  Report Type: Spontaneous
  Country: US (occurrence: US)
  Receive Date: 20161209
  Receipt Date: 20161209
  Transmission Date: 20170207
  Serious: No
  Sender: FDA-Public Use
  Company Number: None

PATIENT
  Age: 61 Year
  Sex: Male

DRUGS (1)
  1. REPATHA [Suspect]
     Active Substance: EVOLOCUMAB
     Dosage: 140MG Q2W SQ
     Route: 058
     Dates: start: 20161115, end: 20161202

REACTIONS (3)
  - Rash [None]
  - Therapy cessation [None]
  - Urticaria [None]

NARRATIVE: CASE EVENT DATE: 20161116
